FAERS Safety Report 9798072 (Version 3)
Quarter: 2014Q1

REPORT INFORMATION
  Report Type: Spontaneous
  Country: SK (occurrence: SK)
  Receive Date: 20140106
  Receipt Date: 20140122
  Transmission Date: 20141002
  Serious: Yes (Life-Threatening)
  Sender: FDA-Public Use
  Company Number: SK-SA-2013SA136348

PATIENT
  Age: 70 Year
  Sex: Male
  Weight: 85 kg

DRUGS (1)
  1. JEVTANA [Suspect]
     Indication: PROSTATE CANCER METASTATIC
     Route: 042
     Dates: start: 20131205, end: 20131205

REACTIONS (1)
  - Myocardial infarction [Recovered/Resolved]
